FAERS Safety Report 25994116 (Version 1)
Quarter: 2025Q4

REPORT INFORMATION
  Report Type: Spontaneous
  Country: JP (occurrence: JP)
  Receive Date: 20251104
  Receipt Date: 20251104
  Transmission Date: 20260118
  Serious: Yes (Other)
  Sender: AMGEN
  Company Number: JP-AMGEN-JPNSP2025214623

PATIENT

DRUGS (3)
  1. PEGFILGRASTIM [Suspect]
     Active Substance: PEGFILGRASTIM
     Indication: Prophylaxis
     Dosage: UNK
     Route: 065
  2. AMRUBICIN [Concomitant]
     Active Substance: AMRUBICIN
     Indication: Small cell lung cancer
     Dosage: 25-40 MG/M~ ON DAYS 1-3 EVERY 22 OR 29 DAYS
     Route: 040
  3. ETOPOSIDE [Concomitant]
     Active Substance: ETOPOSIDE

REACTIONS (12)
  - Neuropathy peripheral [Unknown]
  - Pneumonia [Unknown]
  - Febrile neutropenia [Unknown]
  - Leukopenia [Unknown]
  - Thrombocytopenia [Unknown]
  - Haematotoxicity [Unknown]
  - Fatigue [Unknown]
  - Decreased appetite [Unknown]
  - Liver disorder [Unknown]
  - Diarrhoea [Unknown]
  - Anaemia [Unknown]
  - Nausea [Unknown]
